FAERS Safety Report 6890242-8 (Version None)
Quarter: 2010Q3

REPORT INFORMATION
  Report Type: 
  Country: None (occurrence: None)
  Receive Date: 20100730
  Receipt Date: 20080915
  Transmission Date: 20110219
  Serious: No
  Sender: FDA-Public Use
  Company Number: US-PFIZER INC-2008078001

PATIENT
  Age: 75 Year

DRUGS (1)
  1. LIPITOR [Suspect]

REACTIONS (1)
  - BLOOD CHOLESTEROL INCREASED [None]
